FAERS Safety Report 21059452 (Version 7)
Quarter: 2022Q4

REPORT INFORMATION
  Report Type: Spontaneous
  Country: US (occurrence: US)
  Receive Date: 20220708
  Receipt Date: 20221018
  Transmission Date: 20230113
  Serious: Yes (Hospitalization)
  Sender: FDA-Public Use
  Company Number: US-PFIZER INC-202200938662

PATIENT
  Age: 59 Year
  Sex: Male

DRUGS (2)
  1. LIDOCAINE HYDROCHLORIDE [Suspect]
     Active Substance: LIDOCAINE HYDROCHLORIDE
     Indication: Local anaesthesia
     Dosage: UNK
     Dates: start: 20220420, end: 20220427
  2. SODIUM BICARBONATE [Suspect]
     Active Substance: SODIUM BICARBONATE
     Indication: Local anaesthesia
     Dosage: UNK
     Dates: start: 20220420, end: 20220427

REACTIONS (4)
  - Injection site inflammation [Not Recovered/Not Resolved]
  - Injection site pain [Not Recovered/Not Resolved]
  - Infection [Not Recovered/Not Resolved]
  - Arthritis bacterial [Not Recovered/Not Resolved]

NARRATIVE: CASE EVENT DATE: 20220420
